FAERS Safety Report 5644069-5 (Version None)
Quarter: 2008Q1

REPORT INFORMATION
  Report Type: 
  Country: None (occurrence: None)
  Receive Date: 20080226
  Receipt Date: 20080212
  Transmission Date: 20080703
  Serious: Yes (Hospitalization)
  Sender: FDA-Public Use
  Company Number: B0509432A

PATIENT
  Age: 87 Year
  Sex: Female

DRUGS (10)
  1. PAXIL [Suspect]
     Indication: DRUG USE FOR UNKNOWN INDICATION
     Dosage: 20 MG PER DAY ORAL
     Route: 048
  2. FLUINDIONE TABLET (FLUINDIONE) [Suspect]
     Dosage: 20 MG PER DAY ORAL
     Route: 048
     Dates: end: 20071001
  3. FUROSEMIDE [Concomitant]
  4. POTASSIUM CHLORIDE [Concomitant]
  5. DIGOXIN [Concomitant]
  6. DILTIAZEM HYDROCHLORIDE [Concomitant]
  7. SIMETHICONE [Concomitant]
  8. TIAPRIDE [Concomitant]
  9. BETA ALANINE [Concomitant]
  10. RABEPRAZOLE SODIUM [Concomitant]

REACTIONS (11)
  - CARDIOACTIVE DRUG LEVEL DECREASED [None]
  - CEREBRAL HAEMATOMA [None]
  - CEREBRAL HAEMORRHAGE [None]
  - DYSARTHRIA [None]
  - DYSPHAGIA [None]
  - HEMIPLEGIA [None]
  - INTERNATIONAL NORMALISED RATIO INCREASED [None]
  - MEMORY IMPAIRMENT [None]
  - OVERDOSE [None]
  - SPEECH DISORDER [None]
  - WHITE BLOOD CELL COUNT INCREASED [None]
